FAERS Safety Report 12536952 (Version 1)
Quarter: 2016Q3

REPORT INFORMATION
  Report Type: Report from Study
  Country: JP (occurrence: JP)
  Receive Date: 20160707
  Receipt Date: 20160707
  Transmission Date: 20161109
  Serious: Yes (Hospitalization)
  Sender: FDA-Public Use
  Company Number: JP-SA-2016SA122782

PATIENT
  Age: 54 Year
  Sex: Female
  Weight: 62.6 kg

DRUGS (7)
  1. LIPITOR [Concomitant]
     Active Substance: ATORVASTATIN CALCIUM
     Dates: start: 20131001
  2. TAKEPRON [Concomitant]
     Active Substance: LANSOPRAZOLE
     Dosage: 15
     Dates: start: 20121002
  3. PLAVIX [Suspect]
     Active Substance: CLOPIDOGREL BISULFATE
     Indication: ARTERIOSCLEROSIS
     Route: 065
     Dates: start: 20120906, end: 20140825
  4. DIOVAN [Concomitant]
     Active Substance: VALSARTAN
     Dosage: 40 MG
  5. PLAVIX [Suspect]
     Active Substance: CLOPIDOGREL BISULFATE
     Indication: ARTERIOSCLEROSIS
     Route: 065
     Dates: start: 20120824, end: 20120905
  6. PLAVIX [Suspect]
     Active Substance: CLOPIDOGREL BISULFATE
     Indication: ARTERIOSCLEROSIS
     Route: 065
     Dates: start: 20140826
  7. LIPITOR [Concomitant]
     Active Substance: ATORVASTATIN CALCIUM
     Dosage: 5 MG
     Dates: end: 20130930

REACTIONS (2)
  - Pancreatic carcinoma [Recovered/Resolved]
  - Blood urine present [Recovering/Resolving]

NARRATIVE: CASE EVENT DATE: 20121002
